FAERS Safety Report 4999604-7 (Version None)
Quarter: 2006Q2

REPORT INFORMATION
  Report Type: 
  Country: None (occurrence: None)
  Receive Date: 20060511
  Receipt Date: 20050113
  Transmission Date: 20061013
  Serious: Yes (Death, Hospitalization)
  Sender: FDA-Public Use
  Company Number: US-MERCK-0501USA01817

PATIENT
  Age: 80 Year
  Sex: Female
  Weight: 63 kg

DRUGS (1)
  1. VIOXX [Suspect]
     Indication: BACK PAIN
     Route: 048
     Dates: start: 20000101, end: 20020101

REACTIONS (10)
  - ADVERSE EVENT [None]
  - CEREBROVASCULAR ACCIDENT [None]
  - DEATH [None]
  - DECUBITUS ULCER [None]
  - DEHYDRATION [None]
  - HEART VALVE INSUFFICIENCY [None]
  - MYOCARDIAL INFARCTION [None]
  - PEPTIC ULCER [None]
  - SKIN LACERATION [None]
  - URINARY TRACT INFECTION [None]
